FAERS Safety Report 4326144-0 (Version None)
Quarter: 2004Q1

REPORT INFORMATION
  Report Type: 
  Country: None (occurrence: None)
  Receive Date: 20040324
  Receipt Date: 20040305
  Transmission Date: 20041129
  Serious: Yes (Death, Life-Threatening)
  Sender: FDA-Public Use
  Company Number: D01200400179

PATIENT
  Age: 61 Year
  Sex: Female
  Weight: 122.7 kg

DRUGS (5)
  1. CISPLATIN [Suspect]
     Indication: CARCINOMA
     Dosage: 100 MG/M2 OTHER - INTRAVENOUS NOS
     Route: 042
     Dates: start: 20040105, end: 20040105
  2. SUCRALFATE [Concomitant]
  3. CETOMACROGOL/CHLOROCRESOL/GLYCEROL/PARAFFIN SOFT AND LIQUID/PROPYLENE [Concomitant]
  4. METOCLOPRAMIDE HYDROCHLORIDE [Concomitant]
  5. ALBUTEROL SULFATE [Concomitant]

REACTIONS (10)
  - ASPIRATION [None]
  - HAEMOGLOBIN DECREASED [None]
  - INTERNATIONAL NORMALISED RATIO INCREASED [None]
  - MOUTH HAEMORRHAGE [None]
  - MULTI-ORGAN FAILURE [None]
  - NEUTROPHIL COUNT DECREASED [None]
  - PLATELET COUNT DECREASED [None]
  - RADIATION MUCOSITIS [None]
  - RESPIRATORY ARREST [None]
  - WHITE BLOOD CELL COUNT DECREASED [None]
